FAERS Safety Report 17874531 (Version 1)
Quarter: 2020Q2

REPORT INFORMATION
  Report Type: Spontaneous
  Country: CN (occurrence: CN)
  Receive Date: 20200609
  Receipt Date: 20200609
  Transmission Date: 20200714
  Serious: Yes (Other)
  Sender: FDA-Public Use
  Company Number: CN-ROCHE-2612731

PATIENT
  Age: 50 Year
  Sex: Female

DRUGS (14)
  1. XELODA [Suspect]
     Active Substance: CAPECITABINE
     Route: 048
     Dates: start: 20191125, end: 202004
  2. HERCEPTIN [Suspect]
     Active Substance: TRASTUZUMAB
     Indication: ADENOCARCINOMA GASTRIC
     Route: 065
     Dates: start: 20180123, end: 20180329
  3. IRINOTECAN [Concomitant]
     Active Substance: IRINOTECAN
     Route: 065
     Dates: start: 20180420, end: 20180518
  4. RECOMBINANT HUMAN ENDOSTATIN [Concomitant]
     Active Substance: ENDOSTATIN
     Indication: ADENOCARCINOMA GASTRIC
     Dosage: ABDOMINAL CAVITY
     Route: 065
     Dates: start: 201812, end: 201903
  5. FLUOROURACIL. [Concomitant]
     Active Substance: FLUOROURACIL
     Indication: ADENOCARCINOMA GASTRIC
     Dosage: ABDOMINAL CAVITY
     Route: 065
     Dates: start: 201812, end: 201903
  6. XELODA [Suspect]
     Active Substance: CAPECITABINE
     Route: 048
     Dates: start: 20180420, end: 20180518
  7. PYROTINIB [Concomitant]
     Active Substance: PYROTINIB
     Indication: ADENOCARCINOMA GASTRIC
     Route: 065
     Dates: start: 20191125, end: 202004
  8. XELODA [Suspect]
     Active Substance: CAPECITABINE
     Indication: ADENOCARCINOMA GASTRIC
     Route: 048
     Dates: start: 20180123, end: 20180329
  9. HERCEPTIN [Suspect]
     Active Substance: TRASTUZUMAB
     Route: 065
     Dates: start: 20180420, end: 20180518
  10. PACLITAXEL. [Concomitant]
     Active Substance: PACLITAXEL
     Indication: ADENOCARCINOMA GASTRIC
     Route: 065
     Dates: start: 20170602, end: 201711
  11. IRINOTECAN [Concomitant]
     Active Substance: IRINOTECAN
     Indication: ADENOCARCINOMA GASTRIC
     Route: 065
     Dates: start: 20180123, end: 20180329
  12. DOXORUBICIN [Concomitant]
     Active Substance: DOXORUBICIN
     Indication: ADENOCARCINOMA GASTRIC
     Dosage: DOXORUBICIN LIPOSOME
     Route: 065
     Dates: start: 20181204, end: 201903
  13. OXALIPLATIN. [Concomitant]
     Active Substance: OXALIPLATIN
     Indication: ADENOCARCINOMA GASTRIC
     Route: 065
     Dates: start: 20170602, end: 201711
  14. APATINIB [Concomitant]
     Active Substance: APATINIB
     Indication: ADENOCARCINOMA GASTRIC
     Route: 065
     Dates: start: 20180723, end: 201812

REACTIONS (4)
  - Diarrhoea [Recovering/Resolving]
  - Ileus [Unknown]
  - Decreased appetite [Unknown]
  - Marasmus [Unknown]

NARRATIVE: CASE EVENT DATE: 201902
